FAERS Safety Report 9492046 (Version 3)
Quarter: 2013Q3

REPORT INFORMATION
  Report Type: Report from Study
  Country: AR (occurrence: AR)
  Receive Date: 20130830
  Receipt Date: 20130919
  Transmission Date: 20140515
  Serious: Yes (Hospitalization, Other)
  Sender: FDA-Public Use
  Company Number: PHHY2013AR094726

PATIENT
  Sex: Female

DRUGS (3)
  1. DIOVAN [Suspect]
     Indication: HYPERTENSION
     Dosage: 1 DF, (160 MG) DAILY
     Route: 048
  2. DIOVAN [Suspect]
     Dosage: 1 DF, (320 MG) DAILY
     Route: 048
  3. DIOVAN [Suspect]
     Dosage: 1 DF, (160 MG) DAILY
     Route: 048

REACTIONS (4)
  - Atrial fibrillation [Recovered/Resolved]
  - Blood pressure increased [Recovered/Resolved]
  - Cough [Recovering/Resolving]
  - Hypersensitivity [Unknown]
